FAERS Safety Report 20670379 (Version 1)
Quarter: 2022Q2

REPORT INFORMATION
  Report Type: Spontaneous
  Country: US (occurrence: US)
  Receive Date: 20220404
  Receipt Date: 20220404
  Transmission Date: 20220721
  Serious: No
  Sender: FDA-Public Use
  Company Number: US-BIOVITRUM-2022US04225

PATIENT
  Sex: Male
  Weight: 9 kg

DRUGS (6)
  1. SYNAGIS [Suspect]
     Active Substance: PALIVIZUMAB
     Indication: Premature baby
     Route: 030
  2. ASPIRIN 81 MG TAB CHEW [Concomitant]
  3. FUROSEMIDE 10 MG/ML SOLUTION [Concomitant]
  4. PULMICORT 0.5 MG/2ML AMPUL-NEB [Concomitant]
  5. DIURIL 250 MG/5ML ORAL SUSP [Concomitant]
  6. PROPRANOLOL HCL 20 MG/5 ML SOLUTION [Concomitant]

REACTIONS (1)
  - Malaise [Unknown]
